FAERS Safety Report 8068469 (Version 3)
Quarter: 2013Q1

REPORT INFORMATION
  Report Type: Report from Study
  Country: HU (occurrence: HU)
  Receive Date: 20110804
  Receipt Date: 20130122
  Transmission Date: 20140127
  Serious: Yes (Death, Hospitalization)
  Sender: FDA-Public Use
  Company Number: HU-ELI_LILLY_AND_COMPANY-HU201108000565

PATIENT
  Age: 49 Year
  Sex: Male

DRUGS (24)
  1. GEMCITABINE HYDROCHLORIDE [Suspect]
     Indication: NON-SMALL CELL LUNG CANCER
     Dosage: 2200 MG, 2 X 3 WEEKS
     Route: 042
     Dates: start: 20091109
  2. CARBOPLATIN [Suspect]
     Indication: NON-SMALL CELL LUNG CANCER
     Dosage: 1300 MG, 1 X PER 3 WEEKS
     Route: 042
     Dates: start: 20091109
  3. BEVACIZUMAB [Suspect]
     Indication: NON-SMALL CELL LUNG CANCER
     Dosage: 540 MG, 1 X PER 3 WEEKS
     Route: 042
     Dates: start: 20091109
  4. SERETIDE [Concomitant]
     Dosage: UNK
     Dates: start: 20091104, end: 20100407
  5. SPIRIVA [Concomitant]
     Indication: CHRONIC OBSTRUCTIVE PULMONARY DISEASE
     Dosage: 18 UG, UNK
     Dates: start: 20091104, end: 20100407
  6. MEGASIN [Concomitant]
     Indication: WEIGHT DECREASED
     Dosage: UNK
     Dates: start: 20091109, end: 20100407
  7. AUGMENTIN                               /SCH/ [Concomitant]
     Indication: BRONCHOPNEUMONIA
     Dosage: UNK
     Dates: start: 20091020, end: 20091026
  8. AUGMENTIN                               /SCH/ [Concomitant]
     Dosage: UNK
     Dates: start: 20100322, end: 20100323
  9. KALIUM [Concomitant]
     Indication: PROPHYLAXIS
     Dosage: UNK
     Dates: start: 20091020, end: 20091026
  10. KALIUM [Concomitant]
     Dosage: UNK
     Dates: start: 20091116, end: 20091117
  11. KALIUM [Concomitant]
     Dosage: UNK
     Dates: start: 20100202, end: 20100407
  12. ONDANSETRON [Concomitant]
     Indication: PROPHYLAXIS
     Dosage: UNK
     Dates: start: 20091109
  13. MEDROL [Concomitant]
     Indication: GRANULOCYTOPENIA
     Dosage: UNK
     Dates: start: 20091020, end: 20091029
  14. MEDROL [Concomitant]
     Dosage: UNK
     Dates: start: 20091116, end: 20091117
  15. MEDROL [Concomitant]
     Dosage: UNK
     Dates: start: 20100202, end: 20100407
  16. EPREX [Concomitant]
     Indication: ANAEMIA
     Dosage: UNK
     Dates: start: 20091127, end: 20091220
  17. NEORECORMON [Concomitant]
     Indication: ANAEMIA
     Dosage: UNK
     Dates: start: 20091215, end: 20100407
  18. CONCOR [Concomitant]
     Indication: PALPITATIONS
     Dosage: UNK
     Dates: start: 20091215
  19. CONCOR [Concomitant]
     Dosage: UNK
     Dates: start: 20100104, end: 20100407
  20. JURNISTA [Concomitant]
     Indication: CHEST PAIN
     Dosage: UNK
     Dates: start: 20100104, end: 20100407
  21. NEUPOGEN [Concomitant]
     Indication: GRANULOCYTOPENIA
     Dosage: 48 MILLION IU, UNK
     Dates: start: 20100201, end: 20100203
  22. NEUPOGEN [Concomitant]
     Dosage: 48 MILLION IU, UNK
     Dates: start: 20100203
  23. NEULASTA [Concomitant]
     Indication: PROPHYLAXIS
     Dosage: UNK
     Dates: start: 20100217, end: 20100407
  24. BERODUAL [Concomitant]
     Indication: CHRONIC OBSTRUCTIVE PULMONARY DISEASE
     Dosage: UNK
     Dates: start: 20091020, end: 20091029

REACTIONS (9)
  - Empyema [Fatal]
  - Pneumonia [Recovered/Resolved]
  - Neutropenia [Unknown]
  - Thrombocytopenia [Unknown]
  - Granulocytopenia [Recovered/Resolved]
  - Anaemia [Recovered/Resolved]
  - Pneumonia [Not Recovered/Not Resolved]
  - Empyema [Recovered/Resolved]
  - Leukopenia [Not Recovered/Not Resolved]
